FAERS Safety Report 5456797-5 (Version None)
Quarter: 2007Q3

REPORT INFORMATION
  Report Type: 
  Country: None (occurrence: None)
  Receive Date: 20070918
  Receipt Date: 20070228
  Transmission Date: 20080115
  Serious: Yes (Other)
  Sender: FDA-Public Use
  Company Number: US-ASTRAZENECA-2006UW26162

PATIENT
  Sex: Male
  Weight: 102.3 kg

DRUGS (4)
  1. SEROQUEL [Suspect]
     Indication: SCHIZOPHRENIA
     Route: 048
  2. ABILIFY [Concomitant]
  3. RISPERDAL [Concomitant]
  4. ZOLOFT [Concomitant]

REACTIONS (7)
  - BLOOD PRESSURE INCREASED [None]
  - DIABETES MELLITUS [None]
  - DIABETIC KETOACIDOSIS [None]
  - EXTRAPYRAMIDAL DISORDER [None]
  - NEUROLEPTIC MALIGNANT SYNDROME [None]
  - NEUROPATHY [None]
  - PANCREATITIS [None]
